FAERS Safety Report 25822450 (Version 5)
Quarter: 2025Q4

REPORT INFORMATION
  Report Type: Spontaneous
  Country: US (occurrence: US)
  Receive Date: 20250919
  Receipt Date: 20251027
  Transmission Date: 20260118
  Serious: Yes (Disabling, Other)
  Sender: REGENERON
  Company Number: US-REGENERON PHARMACEUTICALS, INC.-2025-147590

PATIENT
  Sex: Female

DRUGS (2)
  1. EYLEA [Suspect]
     Active Substance: AFLIBERCEPT
     Indication: Macular oedema
     Dosage: UNK, EVERY THREE MONTHS, (FORMULATION: UNKOWN)
     Dates: start: 202207
  2. ANTIBIOTIC EYE DROPS [Concomitant]
     Indication: Product used for unknown indication

REACTIONS (9)
  - Macular hole [Not Recovered/Not Resolved]
  - Blindness unilateral [Unknown]
  - Photopsia [Unknown]
  - Metamorphopsia [Unknown]
  - Epiretinal membrane [Unknown]
  - Diabetic retinopathy [Not Recovered/Not Resolved]
  - Ocular hyperaemia [Unknown]
  - Eye pain [Unknown]
  - Injection site haemorrhage [Unknown]

NARRATIVE: CASE EVENT DATE: 20220101
